FAERS Safety Report 12212058 (Version 1)
Quarter: 2016Q1

REPORT INFORMATION
  Report Type: Spontaneous
  Country: FR (occurrence: FR)
  Receive Date: 20160325
  Receipt Date: 20160325
  Transmission Date: 20160526
  Serious: Yes (Hospitalization)
  Sender: FDA-Public Use
  Company Number: FR-ASTRAZENECA-2016SE30912

PATIENT
  Age: 27271 Day
  Sex: Male

DRUGS (17)
  1. PROCARBAZINE [Concomitant]
     Active Substance: PROCARBAZINE
     Route: 048
     Dates: end: 20151116
  2. PRIMPERAN [Concomitant]
     Active Substance: METOCLOPRAMIDE HYDROCHLORIDE
     Indication: NAUSEA
     Route: 048
  3. CETIRIZINE [Concomitant]
     Active Substance: CETIRIZINE HYDROCHLORIDE
     Route: 048
     Dates: start: 20151127
  4. BACTRIM [Concomitant]
     Active Substance: SULFAMETHOXAZOLE\TRIMETHOPRIM
     Route: 048
  5. LEDERFOLINE [Concomitant]
     Active Substance: LEUCOVORIN CALCIUM
     Route: 048
     Dates: end: 20151115
  6. LEDERFOLINE [Concomitant]
     Active Substance: LEUCOVORIN CALCIUM
     Route: 048
  7. AMLOR [Concomitant]
     Active Substance: AMLODIPINE BESYLATE
     Route: 048
  8. LANTUS [Concomitant]
     Active Substance: INSULIN GLARGINE
     Route: 058
     Dates: end: 20151114
  9. METHOTREXATE [Suspect]
     Active Substance: METHOTREXATE
     Indication: DIFFUSE LARGE B-CELL LYMPHOMA
     Route: 040
  10. SOLU-MEDROL [Concomitant]
     Active Substance: METHYLPREDNISOLONE SODIUM SUCCINATE
     Route: 048
     Dates: start: 20151127
  11. TIORFAN [Concomitant]
     Active Substance: RACECADOTRIL
     Indication: DIARRHOEA
     Route: 048
  12. RITUXIMAB [Concomitant]
     Active Substance: RITUXIMAB
     Indication: DIFFUSE LARGE B-CELL LYMPHOMA
     Route: 041
     Dates: start: 20151127, end: 20151127
  13. PARACETAMOL [Concomitant]
     Active Substance: ACETAMINOPHEN
     Route: 048
     Dates: start: 20151127
  14. INEXIUM [Suspect]
     Active Substance: ESOMEPRAZOLE
     Route: 048
  15. NOVONORM [Concomitant]
     Active Substance: REPAGLINIDE
     Route: 048
  16. ZELITREX [Concomitant]
     Active Substance: VALACYCLOVIR HYDROCHLORIDE
     Route: 048
  17. KEPPRA [Concomitant]
     Active Substance: LEVETIRACETAM
     Route: 048

REACTIONS (3)
  - Drug level increased [Recovered/Resolved]
  - Acute kidney injury [Recovered/Resolved]
  - Diarrhoea [Unknown]

NARRATIVE: CASE EVENT DATE: 20151128
